FAERS Safety Report 21946311 (Version 2)
Quarter: 2023Q1

REPORT INFORMATION
  Report Type: Spontaneous
  Country: FR (occurrence: FR)
  Receive Date: 20230202
  Receipt Date: 20230220
  Transmission Date: 20230418
  Serious: Yes (Other)
  Sender: FDA-Public Use
  Company Number: FR-TEVA-2023-FR-2851680

PATIENT
  Age: 42 Year
  Sex: Male

DRUGS (4)
  1. RISPERIDONE [Suspect]
     Active Substance: RISPERIDONE
     Indication: Behaviour disorder
     Dosage: 2 MILLIGRAM DAILY; ONCE DAILY
     Route: 065
  2. OLANZAPINE [Suspect]
     Active Substance: OLANZAPINE
     Indication: Behaviour disorder
     Dosage: 10 MILLIGRAM DAILY; ONCE DAILY
     Route: 065
  3. LOXAPINE [Suspect]
     Active Substance: LOXAPINE
     Indication: Behaviour disorder
     Dosage: 200 MILLIGRAM DAILY; ONCE DAILY
     Route: 065
  4. ARGININE [Suspect]
     Active Substance: ARGININE
     Indication: Pseudostroke
     Dosage: 18000 MILLIGRAM DAILY; ONCE DAILY
     Route: 065

REACTIONS (3)
  - Muscle injury [Unknown]
  - Pharyngeal disorder [Unknown]
  - Drug ineffective [Unknown]
